FAERS Safety Report 8589270-6 (Version None)
Quarter: 2012Q3

REPORT INFORMATION
  Report Type: 
  Country: None (occurrence: None)
  Receive Date: 20120731
  Receipt Date: 20120716
  Transmission Date: 20120928
  Serious: Yes (Death)
  Sender: FDA-Public Use
  Company Number: TPA2012A04174

PATIENT
  Age: 79 Year
  Sex: Male

DRUGS (6)
  1. BIOPROFENID (KETOPROFEN) [Concomitant]
  2. ADENURIC (FEBUXOSTAT) [Suspect]
     Indication: PRODUCT USED FOR UNKNOWN INDICATION
     Dosage: 80 MG (80 MG,1 IN 1 D) ORAL
     Route: 048
     Dates: end: 20120528
  3. ACETAMINOPHEN [Concomitant]
  4. NEXIUM [Concomitant]
  5. METFORMIN HYDROCHLORIDE [Suspect]
     Indication: TYPE 2 DIABETES MELLITUS
     Dosage: 1000 MG (1000 MG,1 IN 1 D) ORAL
     Route: 048
     Dates: end: 20120528
  6. OLMESARTAN MEDOXOMIL [Suspect]
     Indication: HYPERTENSION
     Dosage: 20/5 MG (1 IN 1 D) ORAL
     Route: 048
     Dates: start: 20100101, end: 20120528

REACTIONS (3)
  - INTERSTITIAL LUNG DISEASE [None]
  - CARDIAC FAILURE [None]
  - ACUTE RESPIRATORY DISTRESS SYNDROME [None]
